FAERS Safety Report 7433331-1 (Version None)
Quarter: 2011Q2

REPORT INFORMATION
  Report Type: 
  Country: None (occurrence: None)
  Receive Date: 20110422
  Receipt Date: 20110419
  Transmission Date: 20111010
  Serious: Yes (Hospitalization, Other)
  Sender: FDA-Public Use
  Company Number: CA-ABBOTT-11P-028-0720484-00

PATIENT
  Sex: Female
  Weight: 77.18 kg

DRUGS (3)
  1. MELOXICAM [Concomitant]
     Indication: RHEUMATOID ARTHRITIS
     Route: 048
  2. HUMIRA [Suspect]
     Indication: RHEUMATOID ARTHRITIS
     Route: 058
     Dates: start: 20040318
  3. ORTHO TRI-CYCLEN [Concomitant]
     Indication: CONTRACEPTION
     Route: 048
     Dates: start: 20080101

REACTIONS (6)
  - HELICOBACTER INFECTION [None]
  - H1N1 INFLUENZA [None]
  - URINARY TRACT INFECTION [None]
  - SEPSIS [None]
  - POLYNEUROPATHY [None]
  - INFLUENZA [None]
